FAERS Safety Report 23246169 (Version 1)
Quarter: 2023Q4

REPORT INFORMATION
  Report Type: Spontaneous
  Country: AU (occurrence: AU)
  Receive Date: 20231130
  Receipt Date: 20231130
  Transmission Date: 20240110
  Serious: Yes (Other)
  Sender: FDA-Public Use
  Company Number: AU-GLAXOSMITHKLINE-AU2023APC166218

PATIENT

DRUGS (2)
  1. SERETIDE [Suspect]
     Active Substance: FLUTICASONE PROPIONATE\SALMETEROL XINAFOATE
     Indication: Chronic obstructive pulmonary disease
     Dosage: 50/500 UG, TWO INHALATIONS, TWICE DAILY
     Route: 055
  2. PREDNISOLONE [Concomitant]
     Active Substance: PREDNISOLONE
     Indication: Chronic obstructive pulmonary disease
     Dosage: 25 MG
     Route: 048

REACTIONS (5)
  - Laryngeal cryptococcosis [Recovered/Resolved]
  - Laryngitis fungal [Recovered/Resolved]
  - Cryptococcosis [Recovered/Resolved]
  - Dysphonia [Recovered/Resolved]
  - Odynophagia [Recovered/Resolved]
